FAERS Safety Report 10994636 (Version 2)
Quarter: 2015Q4

REPORT INFORMATION
  Report Type: Report from Study
  Country: BR (occurrence: BR)
  Receive Date: 20150407
  Receipt Date: 20151103
  Transmission Date: 20160304
  Serious: Yes (Hospitalization, Disabling, Other)
  Sender: FDA-Public Use
  Company Number: BR-ABBVIE-15K-020-1370529-00

PATIENT
  Age: 78 Year
  Sex: Female
  Weight: 44 kg

DRUGS (15)
  1. HUMIRA [Suspect]
     Active Substance: ADALIMUMAB
     Route: 058
     Dates: end: 20150925
  2. NORIPURUM [Concomitant]
     Active Substance: IRON POLYMALTOSE
     Indication: ANAEMIA
     Route: 042
  3. POTASSIUM [Concomitant]
     Active Substance: POTASSIUM
     Indication: PRODUCT USED FOR UNKNOWN INDICATION
  4. ASPIRINA PREVENT [Concomitant]
     Active Substance: ASPIRIN
     Indication: CARDIAC OPERATION
     Route: 048
     Dates: start: 20141204
  5. ERYTHROPOIETIN [Concomitant]
     Active Substance: ERYTHROPOIETIN
     Indication: ANAEMIA
     Route: 058
  6. ACETYLSALICYLIC ACID [Concomitant]
     Active Substance: ASPIRIN
     Indication: ANTICOAGULANT THERAPY
     Route: 048
     Dates: start: 20141214
  7. AZATHIOPRINE. [Concomitant]
     Active Substance: AZATHIOPRINE
     Indication: CROHN^S DISEASE
     Route: 048
     Dates: start: 2014
  8. SIMETHICONE (DIMETHICONE) [Concomitant]
     Active Substance: DIMETHICONE
     Indication: FLATULENCE
     Route: 048
     Dates: start: 201401
  9. RANITIDINE [Concomitant]
     Active Substance: RANITIDINE\RANITIDINE HYDROCHLORIDE
     Indication: PROPHYLAXIS
  10. SIMETHICONE (DIMETHICONE) [Concomitant]
     Active Substance: DIMETHICONE
     Indication: FLATULENCE
  11. HUMIRA [Suspect]
     Active Substance: ADALIMUMAB
     Indication: CROHN^S DISEASE
     Dosage: WEEK ZERO, LOADING DOSE
     Route: 058
     Dates: start: 20140610, end: 20140610
  12. HUMIRA [Suspect]
     Active Substance: ADALIMUMAB
     Route: 058
     Dates: start: 2014, end: 2014
  13. EUTHYROX [Concomitant]
     Active Substance: LEVOTHYROXINE SODIUM
     Indication: THYROID DISORDER
     Route: 048
     Dates: start: 2013
  14. MAGNESIUM [Concomitant]
     Active Substance: MAGNESIUM
     Indication: PRODUCT USED FOR UNKNOWN INDICATION
  15. RANITIDINE [Concomitant]
     Active Substance: RANITIDINE\RANITIDINE HYDROCHLORIDE
     Indication: GASTRIC DISORDER
     Route: 048
     Dates: start: 201401

REACTIONS (19)
  - Intestinal stenosis [Not Recovered/Not Resolved]
  - Intestinal obstruction [Not Recovered/Not Resolved]
  - Cardiac disorder [Recovered/Resolved]
  - Myocardial ischaemia [Recovered/Resolved]
  - Myocardial infarction [Unknown]
  - Malnutrition [Unknown]
  - Tricuspid valve incompetence [Unknown]
  - Blood test abnormal [Unknown]
  - Pain [Recovered/Resolved]
  - Limb discomfort [Recovered/Resolved]
  - Constipation [Recovered/Resolved]
  - Anaemia [Unknown]
  - Myocardial ischaemia [Unknown]
  - Flatulence [Unknown]
  - Chest pain [Recovered/Resolved]
  - Hypovitaminosis [Unknown]
  - Coronary artery occlusion [Recovered/Resolved]
  - Crohn^s disease [Not Recovered/Not Resolved]
  - Gastric disorder [Unknown]

NARRATIVE: CASE EVENT DATE: 2014
